FAERS Safety Report 14737191 (Version 1)
Quarter: 2018Q2

REPORT INFORMATION
  Report Type: Spontaneous
  Country: CA (occurrence: CA)
  Receive Date: 20180409
  Receipt Date: 20180409
  Transmission Date: 20180711
  Serious: Yes (Other)
  Sender: FDA-Public Use
  Company Number: CA-MYLANLABS-2018M1022092

PATIENT
  Age: 58 Year
  Sex: Female

DRUGS (7)
  1. LORAZEPAM. [Concomitant]
     Active Substance: LORAZEPAM
     Indication: SEDATION
     Route: 065
  2. MORPHINE [Concomitant]
     Active Substance: MORPHINE
     Indication: ENDOTRACHEAL INTUBATION
     Dosage: FORMULATION: ORAL LIQUID; STARTED ON DAY 3
     Route: 048
  3. HYDROMORPHONE [Concomitant]
     Active Substance: HYDROMORPHONE
     Indication: WITHDRAWAL SYNDROME
     Route: 042
  4. METHADONE [Suspect]
     Active Substance: METHADONE HYDROCHLORIDE
     Indication: PRODUCT USED FOR UNKNOWN INDICATION
     Dosage: RECEIVING AS DAILY WITNESSED DOSE FROM HER LOCAL PHARMACY; MISSED HER DOSE ON THE DAY OF ADMISSION
     Route: 065
  5. HEPARIN [Concomitant]
     Active Substance: HEPARIN SODIUM
     Indication: CARDIAC VENTRICULAR THROMBOSIS
     Route: 042
  6. MORPHINE [Concomitant]
     Active Substance: MORPHINE
     Dosage: 5 TO 10MG EVERY 4HOURS AS NEEDED FOR WITHDRAWAL SYMPTOMS.
     Route: 048
  7. NALOXONE [Concomitant]
     Active Substance: NALOXONE
     Indication: PRODUCT USED FOR UNKNOWN INDICATION
     Dosage: ADMINISTERED AFTER PRESENTATION IN ICU
     Route: 030

REACTIONS (3)
  - Drug abuse [None]
  - Withdrawal syndrome [Recovered/Resolved]
  - Agitation [Recovered/Resolved]
